FAERS Safety Report 9024387 (Version 1)
Quarter: 2012Q4

REPORT INFORMATION
  Report Type: Spontaneous
  Country: CH (occurrence: None)
  Receive Date: 20121101
  Receipt Date: 20121101
  Transmission Date: 20130627
  Serious: Yes (Death)
  Sender: FDA-Public Use
  Company Number: FK201203193

PATIENT
  Age: 87 Year
  Sex: Male

DRUGS (1)
  1. AMIODARONE HCL [Suspect]
     Dosage: bolus #1
     Route: 040

REACTIONS (2)
  - Pulmonary toxicity [None]
  - Pleural effusion [None]
